FAERS Safety Report 12799055 (Version 1)
Quarter: 2016Q3

REPORT INFORMATION
  Report Type: Spontaneous
  Country: US (occurrence: US)
  Receive Date: 20160930
  Receipt Date: 20160930
  Transmission Date: 20161109
  Serious: Yes (Death, Life-Threatening, Hospitalization, Disabling, Other)
  Sender: FDA-Public Use
  Company Number: US-009507513-1609USA010471

PATIENT
  Age: 37 Year
  Sex: Male

DRUGS (1)
  1. VYTORIN [Suspect]
     Active Substance: EZETIMIBE\SIMVASTATIN
     Indication: RHABDOMYOLYSIS
     Dosage: UNK
     Route: 048

REACTIONS (6)
  - Drug ineffective for unapproved indication [Unknown]
  - Drug prescribing error [Unknown]
  - Rhabdomyolysis [Fatal]
  - Renal failure [Fatal]
  - Cardiac arrest [Fatal]
  - Haematoma [Unknown]

NARRATIVE: CASE EVENT DATE: 2008
